FAERS Safety Report 24215628 (Version 1)
Quarter: 2024Q3

REPORT INFORMATION
  Report Type: Spontaneous
  Country: CH (occurrence: CH)
  Receive Date: 20240816
  Receipt Date: 20240816
  Transmission Date: 20241017
  Serious: Yes (Other)
  Sender: AMGEN
  Company Number: CH-AMGEN-CHESP2024159643

PATIENT

DRUGS (1)
  1. XGEVA [Suspect]
     Active Substance: DENOSUMAB
     Indication: Metastases to bone
     Dosage: UNK
     Route: 065

REACTIONS (5)
  - Pathological fracture [Unknown]
  - Osteonecrosis of jaw [Unknown]
  - Spinal cord compression [Unknown]
  - Bone disorder [Unknown]
  - Bone pain [Unknown]
